FAERS Safety Report 24275188 (Version 1)
Quarter: 2024Q3

REPORT INFORMATION
  Report Type: Report from Study
  Country: US (occurrence: US)
  Receive Date: 20240903
  Receipt Date: 20240903
  Transmission Date: 20241017
  Serious: Yes (Other)
  Sender: ABBVIE
  Company Number: US-ABBVIE-5798162

PATIENT
  Age: 74 Year
  Sex: Female

DRUGS (1)
  1. IMBRUVICA [Suspect]
     Active Substance: IBRUTINIB
     Indication: Chronic lymphocytic leukaemia
     Route: 048
     Dates: start: 20150101

REACTIONS (11)
  - Cataract [Unknown]
  - Head discomfort [Unknown]
  - Photopsia [Unknown]
  - Hypoacusis [Unknown]
  - Tinnitus [Unknown]
  - Migraine [Unknown]
  - Skin cancer [Unknown]
  - Memory impairment [Unknown]
  - Insomnia [Unknown]
  - Headache [Unknown]
  - Wound infection [Unknown]

NARRATIVE: CASE EVENT DATE: 20240101
